FAERS Safety Report 24926412 (Version 1)
Quarter: 2025Q1

REPORT INFORMATION
  Report Type: Spontaneous
  Country: US (occurrence: US)
  Receive Date: 20250205
  Receipt Date: 20250205
  Transmission Date: 20250409
  Serious: Yes (Other)
  Sender: NOVO NORDISK
  Company Number: US-NOVOPROD-1335865

PATIENT
  Age: 61 Year
  Sex: Male

DRUGS (1)
  1. NOVOLOG MIX 70/30 [Suspect]
     Active Substance: INSULIN ASPART
     Indication: Type 2 diabetes mellitus
     Dosage: 34 IU, QD (12 UNITS IN AM AND 22 IN PM)
     Route: 058

REACTIONS (2)
  - Macular degeneration [Unknown]
  - Glaucoma [Unknown]

NARRATIVE: CASE EVENT DATE: 20190101
